FAERS Safety Report 6443100-7 (Version None)
Quarter: 2009Q4

REPORT INFORMATION
  Report Type: 
  Country: None (occurrence: None)
  Receive Date: 20091117
  Receipt Date: 20091111
  Transmission Date: 20100525
  Serious: Yes (Hospitalization)
  Sender: FDA-Public Use
  Company Number: B0604892A

PATIENT
  Sex: Female

DRUGS (1)
  1. ALLI [Suspect]
     Route: 065

REACTIONS (3)
  - BULIMIA NERVOSA [None]
  - DRUG DEPENDENCE [None]
  - INTENTIONAL DRUG MISUSE [None]
